FAERS Safety Report 4864248-4 (Version None)
Quarter: 2005Q4

REPORT INFORMATION
  Report Type: 
  Country: None (occurrence: None)
  Receive Date: 20051222
  Receipt Date: 20051212
  Transmission Date: 20060501
  Serious: Yes (Other)
  Sender: FDA-Public Use
  Company Number: 2005GB02417

PATIENT
  Age: 35 Year
  Sex: Male

DRUGS (1)
  1. SEROQUEL [Suspect]
     Indication: SCHIZOPHRENIA
     Route: 048
     Dates: start: 20041101, end: 20051208

REACTIONS (4)
  - ATRIAL FLUTTER [None]
  - ELECTROCARDIOGRAM ABNORMAL [None]
  - HOT FLUSH [None]
  - TACHYCARDIA [None]
